FAERS Safety Report 13089713 (Version 1)
Quarter: 2017Q1

REPORT INFORMATION
  Report Type: Spontaneous
  Country: US (occurrence: US)
  Receive Date: 20170105
  Receipt Date: 20170105
  Transmission Date: 20170428
  Serious: Yes (Death, Hospitalization)
  Sender: FDA-Public Use
  Company Number: US-BAYER-2017-000816

PATIENT
  Age: 54 Year
  Sex: Male

DRUGS (6)
  1. LORATADINE. [Suspect]
     Active Substance: LORATADINE
     Route: 048
  2. GABAPENTIN. [Suspect]
     Active Substance: GABAPENTIN
  3. ACETAMINOPHEN AND CODEINE [Suspect]
     Active Substance: ACETAMINOPHEN\CODEINE PHOSPHATE
  4. TRAZODONE [Suspect]
     Active Substance: TRAZODONE HYDROCHLORIDE
  5. METAXALONE. [Suspect]
     Active Substance: METAXALONE
  6. CLORAZEPATE [Suspect]
     Active Substance: CLORAZEPATE DIPOTASSIUM

REACTIONS (1)
  - Toxicity to various agents [Fatal]
